FAERS Safety Report 14831145 (Version 2)
Quarter: 2018Q2

REPORT INFORMATION
  Report Type: Spontaneous
  Country: JP (occurrence: JP)
  Receive Date: 20180501
  Receipt Date: 20180515
  Transmission Date: 20180711
  Serious: Yes (Hospitalization, Other)
  Sender: FDA-Public Use
  Company Number: JP-ROCHE-2098003

PATIENT
  Age: 63 Year
  Sex: Female
  Weight: 58 kg

DRUGS (21)
  1. AVASTIN [Suspect]
     Active Substance: BEVACIZUMAB
     Route: 041
     Dates: start: 20170926, end: 20180226
  2. LYRICA [Concomitant]
     Active Substance: PREGABALIN
     Route: 048
     Dates: start: 20170926
  3. TRANEXAMIC ACID. [Concomitant]
     Active Substance: TRANEXAMIC ACID
     Route: 048
  4. MIYA-BM [Concomitant]
     Active Substance: CLOSTRIDIUM BUTYRICUM SPORES STRAIN M-55
     Dosage: IT PROPERLY DECREASES WHEN AT THE STOOL LOOSE.
     Route: 048
  5. SEISHOKU [Concomitant]
     Active Substance: SODIUM CHLORIDE
     Dosage: DOSE INTERVAL UNCERTAINTY
     Route: 041
  6. AZUNOL [Concomitant]
     Active Substance: SODIUM GUALENATE
     Dosage: MORE THAN FIVE TIMES A DAY?DOSAGE IS UNCERTAIN.
     Route: 049
  7. MAGNESIUM OXIDE. [Concomitant]
     Active Substance: MAGNESIUM OXIDE
     Dosage: IT PROPERLY DECREASES WHEN AT THE STOOL LOOSE.
     Route: 065
  8. KETOPROFEN. [Concomitant]
     Active Substance: KETOPROFEN
     Route: 061
  9. SEISHOKU [Concomitant]
     Active Substance: SODIUM CHLORIDE
     Dosage: DOSE INTERVAL UNCERTAINTY
     Route: 041
  10. PACLITAXEL. [Concomitant]
     Active Substance: PACLITAXEL
     Indication: OVARIAN CANCER
     Dosage: DOSAGE IS UNCERTAIN.
     Route: 041
     Dates: start: 20170502, end: 20170727
  11. RHINOCORT (JAPAN) [Concomitant]
     Dosage: DOSAGE IS UNCERTAIN.
     Route: 045
  12. LOXOPROFEN SODIUM HYDRATE [Concomitant]
     Active Substance: LOXOPROFEN SODIUM DIHYDRATE
     Route: 048
  13. TOVIAZ [Concomitant]
     Active Substance: FESOTERODINE FUMARATE
     Route: 048
  14. AVASTIN [Suspect]
     Active Substance: BEVACIZUMAB
     Route: 041
     Dates: start: 20170822
  15. DOCETAXEL. [Concomitant]
     Active Substance: DOCETAXEL
     Indication: OVARIAN CANCER
     Dosage: DOSAGE IS UNCERTAIN.
     Route: 041
     Dates: start: 20170822, end: 20170822
  16. TEPRENONE [Concomitant]
     Active Substance: TEPRENONE
     Route: 048
  17. ORADOL (JAPAN) [Concomitant]
     Dosage: 3-4 TIMES A DAY
     Route: 048
  18. LAC-B [Concomitant]
     Active Substance: BIFIDOBACTERIUM SPP.
     Dosage: IT PROPERLY DECREASES WHEN AT THE STOOL LOOSE.
     Route: 048
  19. AVASTIN [Suspect]
     Active Substance: BEVACIZUMAB
     Indication: OVARIAN CANCER
     Route: 041
     Dates: start: 20170502, end: 20170727
  20. CARBOPLATIN. [Concomitant]
     Active Substance: CARBOPLATIN
     Indication: OVARIAN CANCER
     Dosage: DOSAGE IS UNCERTAIN.
     Route: 041
     Dates: start: 20170502, end: 20170727
  21. BROTIZOLAM [Concomitant]
     Active Substance: BROTIZOLAM
     Dosage: SINGE USE  WHEN SLEEPLESS
     Route: 048

REACTIONS (2)
  - Metastases to peritoneum [Unknown]
  - Urogenital fistula [Not Recovered/Not Resolved]

NARRATIVE: CASE EVENT DATE: 20180314
